FAERS Safety Report 13341552 (Version 1)
Quarter: 2017Q1

REPORT INFORMATION
  Report Type: Spontaneous
  Country: US (occurrence: US)
  Receive Date: 20170316
  Receipt Date: 20170316
  Transmission Date: 20170428
  Serious: No
  Sender: FDA-Public Use
  Company Number: US-ROCHE-1850452

PATIENT
  Age: 60 Year

DRUGS (1)
  1. ERIVEDGE [Suspect]
     Active Substance: VISMODEGIB
     Indication: BASAL CELL CARCINOMA
     Dosage: 150 MG ONCE DAILY
     Route: 048
     Dates: start: 2016, end: 2016

REACTIONS (1)
  - Alopecia [Unknown]
